FAERS Safety Report 13440418 (Version 2)
Quarter: 2017Q2

REPORT INFORMATION
  Report Type: Spontaneous
  Country: IT (occurrence: IT)
  Receive Date: 20170413
  Receipt Date: 20170422
  Transmission Date: 20170830
  Serious: Yes (Other)
  Sender: FDA-Public Use
  Company Number: IT-ACCORD-050102

PATIENT
  Age: 73 Year
  Sex: Female
  Weight: 65 kg

DRUGS (1)
  1. ARIPIPRAZOLE ACCORD [Suspect]
     Active Substance: ARIPIPRAZOLE
     Indication: PSYCHOTIC DISORDER
     Dosage: STRENGTH: 5 MG?DAILY
     Route: 048
     Dates: start: 20170308, end: 20170322

REACTIONS (6)
  - Product substitution issue [Recovering/Resolving]
  - Dizziness [Recovering/Resolving]
  - Drug effect decreased [Recovering/Resolving]
  - Hypoaesthesia [Recovering/Resolving]
  - Malaise [Recovering/Resolving]
  - Somnolence [Recovering/Resolving]

NARRATIVE: CASE EVENT DATE: 20170308
